FAERS Safety Report 9429957 (Version 1)
Quarter: 2013Q3

REPORT INFORMATION
  Report Type: Spontaneous
  Country: US (occurrence: US)
  Receive Date: 20130730
  Receipt Date: 20130730
  Transmission Date: 20140515
  Serious: No
  Sender: FDA-Public Use
  Company Number: US-ABBOTT-13P-163-1048485-00

PATIENT
  Sex: Female
  Weight: 68.1 kg

DRUGS (16)
  1. NIASPAN (COATED) [Suspect]
     Indication: BLOOD CHOLESTEROL INCREASED
     Dates: start: 20130205
  2. NIASPAN (COATED) [Suspect]
     Dates: start: 20130114
  3. SPIRINOLACTONE [Concomitant]
     Indication: PRODUCT USED FOR UNKNOWN INDICATION
  4. PRAVASTATIN [Concomitant]
     Indication: PRODUCT USED FOR UNKNOWN INDICATION
  5. ENALAPRIL [Concomitant]
     Indication: PRODUCT USED FOR UNKNOWN INDICATION
  6. FENOFIBRATE [Concomitant]
     Indication: PRODUCT USED FOR UNKNOWN INDICATION
  7. METOPROLOL [Concomitant]
     Indication: PRODUCT USED FOR UNKNOWN INDICATION
  8. LEVOTHYROXINE [Concomitant]
     Indication: PRODUCT USED FOR UNKNOWN INDICATION
  9. GENERIC FOR PLAVIX [Concomitant]
     Indication: PRODUCT USED FOR UNKNOWN INDICATION
  10. MVI [Concomitant]
     Indication: PRODUCT USED FOR UNKNOWN INDICATION
  11. VIT E [Concomitant]
     Indication: PRODUCT USED FOR UNKNOWN INDICATION
  12. B12 [Concomitant]
     Indication: PRODUCT USED FOR UNKNOWN INDICATION
  13. VIT D [Concomitant]
     Indication: PRODUCT USED FOR UNKNOWN INDICATION
  14. VIT C [Concomitant]
     Indication: PRODUCT USED FOR UNKNOWN INDICATION
  15. CALCIUM [Concomitant]
     Indication: PRODUCT USED FOR UNKNOWN INDICATION
  16. CO Q10 [Concomitant]
     Indication: PRODUCT USED FOR UNKNOWN INDICATION

REACTIONS (4)
  - Musculoskeletal discomfort [Recovered/Resolved]
  - Pruritus [Not Recovered/Not Resolved]
  - Musculoskeletal pain [Recovered/Resolved]
  - Insomnia [Unknown]
